FAERS Safety Report 21520269 (Version 1)
Quarter: 2022Q4

REPORT INFORMATION
  Report Type: Spontaneous
  Country: CZ (occurrence: CZ)
  Receive Date: 20221028
  Receipt Date: 20221028
  Transmission Date: 20230112
  Serious: Yes (Life-Threatening, Hospitalization, Other)
  Sender: FDA-Public Use
  Company Number: None

PATIENT
  Age: 76 Year
  Sex: Male
  Weight: 104 kg

DRUGS (6)
  1. PRIMOVIST [Suspect]
     Active Substance: GADOXETATE DISODIUM
     Indication: Magnetic resonance imaging hepatobiliary
     Dosage: SINGLE ADMINISTRATION
     Route: 042
     Dates: start: 20220926, end: 20220926
  2. TELMISARTAN [Concomitant]
     Active Substance: TELMISARTAN
     Indication: Hypertension
     Dosage: 1-0-0
     Route: 048
     Dates: start: 2021, end: 20220928
  3. BISOPROLOL PMCS [Concomitant]
     Indication: Tachyarrhythmia
     Dosage: 1-0-0
     Route: 048
     Dates: start: 20220915, end: 20220928
  4. BISOPROLOL PMCS [Concomitant]
     Indication: Hypertension
  5. PANTOPRAZOLE SODIUM [Concomitant]
     Active Substance: PANTOPRAZOLE SODIUM
     Indication: Gastroduodenal ulcer
     Dosage: 1-0-0
     Route: 048
     Dates: start: 20220914, end: 20220928
  6. PROPAFENONE [Concomitant]
     Active Substance: PROPAFENONE
     Indication: Arrhythmia
     Dosage: 1-0-1
     Route: 048
     Dates: start: 20220915, end: 20220928

REACTIONS (4)
  - Bradycardia [Recovered/Resolved]
  - Hypotension [Recovered/Resolved]
  - Vertigo [Recovered/Resolved]
  - Acute kidney injury [Recovered/Resolved]

NARRATIVE: CASE EVENT DATE: 20220928
